FAERS Safety Report 23864775 (Version 2)
Quarter: 2024Q3

REPORT INFORMATION
  Report Type: Report from Study
  Country: BR (occurrence: BR)
  Receive Date: 20240516
  Receipt Date: 20240705
  Transmission Date: 20241016
  Serious: Yes (Other)
  Sender: TAKEDA
  Company Number: BR-TAKEDA-2020TUS002613

PATIENT
  Age: 64 Year
  Sex: Female

DRUGS (2)
  1. VEDOLIZUMAB [Suspect]
     Active Substance: VEDOLIZUMAB
     Indication: Colitis ulcerative
     Dosage: 300 MILLIGRAM
     Route: 042
     Dates: start: 20180816
  2. MESALAMINE [Suspect]
     Active Substance: MESALAMINE
     Indication: Product used for unknown indication
     Dosage: UNK UNK, BID
     Route: 065

REACTIONS (11)
  - Pneumonia [Recovering/Resolving]
  - Off label use [Unknown]
  - Inappropriate schedule of product administration [Recovered/Resolved]
  - Asthma [Unknown]
  - Malaise [Not Recovered/Not Resolved]
  - Gastrointestinal inflammation [Unknown]
  - Product availability issue [Recovered/Resolved]
  - Chronic sinusitis [Unknown]
  - Wheezing [Recovering/Resolving]
  - Influenza [Recovering/Resolving]
  - Bronchitis [Recovering/Resolving]

NARRATIVE: CASE EVENT DATE: 20191010
